FAERS Safety Report 9269185 (Version 1)
Quarter: 2013Q2

REPORT INFORMATION
  Report Type: Spontaneous
  Country: US (occurrence: US)
  Receive Date: 20130503
  Receipt Date: 20130503
  Transmission Date: 20140414
  Serious: No
  Sender: FDA-Public Use
  Company Number: US-009507513-1305USA000703

PATIENT
  Sex: Male

DRUGS (3)
  1. SAPHRIS [Suspect]
     Indication: BIPOLAR DISORDER
     Dosage: UNK
     Route: 060
  2. SAPHRIS [Suspect]
     Indication: SCHIZOPHRENIA
  3. SAPHRIS [Suspect]
     Indication: AKATHISIA

REACTIONS (4)
  - Insomnia [Unknown]
  - Activation syndrome [Unknown]
  - Akathisia [Unknown]
  - Off label use [Unknown]
